FAERS Safety Report 24712677 (Version 1)
Quarter: 2024Q4

REPORT INFORMATION
  Report Type: Spontaneous
  Country: US (occurrence: None)
  Receive Date: 20241209
  Receipt Date: 20241209
  Transmission Date: 20250115
  Serious: No
  Sender: Public
  Company Number: None

PATIENT
  Age: 18 Year
  Sex: Male

DRUGS (2)
  1. ADVATE [Suspect]
     Active Substance: ANTIHEMOPHILIC FACTOR, HUMAN RECOMBINANT
     Indication: Factor VIII deficiency
     Dosage: DOSE/FREQUENCY: INFUSE 3000 UNITS (2850-3150) SLOW IV PUSH 2 TIMES PER WEEK (ON MONDAY AND WEDNESDA
     Route: 042
     Dates: start: 202211
  2. ADVATE [Suspect]
     Active Substance: ANTIHEMOPHILIC FACTOR, HUMAN RECOMBINANT
     Indication: Factor VIII deficiency
     Dosage: INFUSE 4000 UNITS (3800-4200) 1 TIME A WEEK (ON FRIDAY)?
     Route: 042
     Dates: start: 202211

REACTIONS (1)
  - Haemorrhage [None]

NARRATIVE: CASE EVENT DATE: 20241114
